FAERS Safety Report 16678720 (Version 3)
Quarter: 2019Q4

REPORT INFORMATION
  Report Type: Spontaneous
  Country: DE (occurrence: DE)
  Receive Date: 20190807
  Receipt Date: 20191029
  Transmission Date: 20200122
  Serious: Yes (Other)
  Sender: FDA-Public Use
  Company Number: PHHY2019DE181475

PATIENT
  Sex: Female

DRUGS (2)
  1. VALSACOR [Concomitant]
     Active Substance: VALSARTAN
     Indication: PRODUCT USED FOR UNKNOWN INDICATION
     Dosage: UNK
     Route: 065
  2. VALSARTAN 1 A PHARMA [Suspect]
     Active Substance: VALSARTAN
     Indication: PRODUCT USED FOR UNKNOWN INDICATION
     Dosage: 160 MG, QD (DAILY IN THE MORNING)
     Route: 065
     Dates: start: 201709, end: 2018

REACTIONS (9)
  - Mental impairment [Unknown]
  - Bone pain [Unknown]
  - Nodule [Unknown]
  - Malaise [Unknown]
  - Fear of disease [Unknown]
  - Sleep disorder [Unknown]
  - Anxiety [Unknown]
  - Contusion [Unknown]
  - Milia [Unknown]
